FAERS Safety Report 10540676 (Version 2)
Quarter: 2014Q4

REPORT INFORMATION
  Report Type: Spontaneous
  Country: TR (occurrence: TR)
  Receive Date: 20141024
  Receipt Date: 20141024
  Transmission Date: 20150529
  Serious: Yes (Other)
  Sender: FDA-Public Use
  Company Number: TR-NOVOPROD-398802

PATIENT
  Age: 32 Year
  Sex: Female
  Weight: 106 kg

DRUGS (5)
  1. FOLBIOL [Concomitant]
     Active Substance: FOLIC ACID
     Indication: VITAMIN SUPPLEMENTATION
     Dosage: 1X1
     Route: 065
     Dates: start: 201312, end: 201408
  2. ASPIRIN. [Concomitant]
     Active Substance: ASPIRIN
     Indication: HAEMOSTASIS
     Dosage: 100 MG, QD
     Route: 048
     Dates: start: 20140106, end: 201408
  3. NOVORAPID [Suspect]
     Active Substance: INSULIN ASPART
     Indication: TYPE 2 DIABETES MELLITUS
     Dosage: 18 U, QD
     Route: 058
     Dates: start: 20140116, end: 201405
  4. ALFAMET [Concomitant]
     Active Substance: METHYLDOPA
     Indication: HYPERTENSION
     Dosage: 500 MG, QD
     Route: 048
     Dates: start: 20140121, end: 201408
  5. LEVEMIR [Suspect]
     Active Substance: INSULIN DETEMIR
     Indication: TYPE 2 DIABETES MELLITUS
     Dosage: 6 U, QD
     Route: 058
     Dates: start: 20140116, end: 201405

REACTIONS (2)
  - Stillbirth [Recovered/Resolved]
  - Exposure during pregnancy [Recovered/Resolved]

NARRATIVE: CASE EVENT DATE: 20131206
